FAERS Safety Report 7294862-0 (Version None)
Quarter: 2011Q1

REPORT INFORMATION
  Report Type: 
  Country: None (occurrence: None)
  Receive Date: 20110211
  Receipt Date: 20110211
  Transmission Date: 20110831
  Serious: Yes (Other)
  Sender: FDA-Public Use
  Company Number: None

PATIENT
  Age: 56 Year
  Sex: Female
  Weight: 87.5442 kg

DRUGS (2)
  1. PROPOXYPHENE HCL AND ACETAMINOPHEN [Suspect]
     Indication: ARTHRALGIA
     Dosage: TAKE 1 TABLET BY MOUTH 3 TIMES A DAY
     Route: 048
     Dates: start: 20100917
  2. FLUCONAZOLE TABLET PS [Suspect]
     Indication: FUNGAL INFECTION
     Dosage: FLUCONAZOLE TAKE ONE TABLET FOR ONE DOSE
     Dates: start: 20101223

REACTIONS (3)
  - NAUSEA [None]
  - HEADACHE [None]
  - CHEST PAIN [None]
